FAERS Safety Report 13425089 (Version 3)
Quarter: 2017Q3

REPORT INFORMATION
  Report Type: Spontaneous
  Country: IT (occurrence: IT)
  Receive Date: 20170411
  Receipt Date: 20170717
  Transmission Date: 20171127
  Serious: Yes (Hospitalization)
  Sender: FDA-Public Use
  Company Number: IT-009507513-1704ITA002439

PATIENT
  Age: 30 Year
  Sex: Female
  Weight: 60 kg

DRUGS (5)
  1. TARGOSID [Interacting]
     Active Substance: TEICOPLANIN
     Indication: HYPERPYREXIA
     Dosage: 600 MG, TWICE A DAY, EQUAL TO 1.2 G DAILY
     Route: 042
     Dates: start: 20170322, end: 20170327
  2. METRONIDAZOLE. [Interacting]
     Active Substance: METRONIDAZOLE
     Indication: HYPERPYREXIA
     Dosage: 500 MG, THREE TIMES A DAY, EQUAL TO 1.5 G DAILY
     Route: 042
     Dates: start: 20170322, end: 20170327
  3. ZERBAXA [Suspect]
     Active Substance: CEFTOLOZANE SULFATE\TAZOBACTAM SODIUM
     Indication: HYPERPYREXIA
     Dosage: 1.5 G IN 100 ML OF SODIUM CHLORID SOLUTION IN 1 HOUR, THREE TIMES A DAY, EQUAL TO 3 DOSE(UNIT) DAILY
     Route: 042
     Dates: start: 20170322, end: 20170327
  4. CREON (PANCRELIPASE) [Concomitant]
     Indication: PANCREATITIS
     Dosage: 30000 INTERNATIONL UNITS IN THOUSANDS(IU)
     Route: 048
     Dates: start: 20170322, end: 20170322
  5. PLASIL [Concomitant]
     Active Substance: METOCLOPRAMIDE HYDROCHLORIDE
     Indication: NAUSEA
     Dosage: 1 DOSE(UNIT)
     Route: 042
     Dates: start: 20170322, end: 20170322

REACTIONS (3)
  - Pruritus [Recovering/Resolving]
  - Drug interaction [Recovering/Resolving]
  - Erythema [Recovering/Resolving]

NARRATIVE: CASE EVENT DATE: 20170326
